FAERS Safety Report 5061641-4 (Version None)
Quarter: 2006Q3

REPORT INFORMATION
  Report Type: 
  Country: None (occurrence: None)
  Receive Date: 20060721
  Receipt Date: 20060710
  Transmission Date: 20061208
  Serious: Yes (Hospitalization, Other)
  Sender: FDA-Public Use
  Company Number: 2005139935

PATIENT
  Age: 68 Year
  Sex: Male
  Weight: 104.3273 kg

DRUGS (4)
  1. BEXTRA [Suspect]
     Indication: ARTHRITIS
     Dosage: (1 IN 1 D),
     Dates: end: 20050201
  2. BEXTRA [Suspect]
     Indication: MUSCULOSKELETAL PAIN
     Dosage: (1 IN 1 D),
     Dates: end: 20050201
  3. BEXTRA [Suspect]
     Indication: PAIN
     Dosage: (1 IN 1 D),
     Dates: end: 20050201
  4. VIOXX [Suspect]
     Indication: ILL-DEFINED DISORDER
     Dates: start: 19990101, end: 20040901

REACTIONS (7)
  - CEREBROVASCULAR ACCIDENT [None]
  - CONVULSION [None]
  - FALL [None]
  - HYPOAESTHESIA [None]
  - NECK INJURY [None]
  - PHARMACEUTICAL PRODUCT COMPLAINT [None]
  - POOR QUALITY DRUG ADMINISTERED [None]
